FAERS Safety Report 9020713 (Version 1)
Quarter: 2013Q1

REPORT INFORMATION
  Report Type: Spontaneous
  Country: US (occurrence: US)
  Receive Date: 20130119
  Receipt Date: 20130119
  Transmission Date: 20140127
  Serious: No
  Sender: FDA-Public Use
  Company Number: US-ALLERGAN-1206085US

PATIENT
  Age: 58 Year
  Sex: Female

DRUGS (11)
  1. BOTOX COSMETIC [Suspect]
     Indication: FACE LIFT
     Dosage: 30 UNITS, SINGLE
     Route: 030
     Dates: start: 201109, end: 201109
  2. BOTOX COSMETIC [Suspect]
     Dosage: 30 UNITS, SINGLE
     Route: 030
     Dates: start: 20120322, end: 20120322
  3. LEXAPRO [Concomitant]
     Indication: DEPRESSION
     Dosage: UNK
  4. CLARITIN                           /00917501/ [Concomitant]
     Indication: HYPERSENSITIVITY
     Dosage: UNK
  5. AMBIEN [Concomitant]
     Indication: INSOMNIA
     Dosage: UNK
  6. BONIVA [Concomitant]
     Indication: PRODUCT USED FOR UNKNOWN INDICATION
     Dosage: UNK
  7. GLUCOSAMIN CHONDROITAN [Concomitant]
     Indication: SUPPLEMENTATION THERAPY
     Dosage: UNK
  8. VITAMAN A [Concomitant]
     Indication: SUPPLEMENTATION THERAPY
     Dosage: UNK
  9. VITAMIN D /00107901/ [Concomitant]
     Indication: SUPPLEMENTATION THERAPY
     Dosage: UNK
  10. DOXYCYCLINE [Concomitant]
     Indication: ACNE
     Dosage: UNK
  11. DOXYCYCLINE [Concomitant]
     Indication: ROSACEA

REACTIONS (1)
  - Skin disorder [Not Recovered/Not Resolved]
